FAERS Safety Report 19926610 (Version 1)
Quarter: 2021Q4

REPORT INFORMATION
  Report Type: Report from Study
  Country: US (occurrence: US)
  Receive Date: 20211007
  Receipt Date: 20211007
  Transmission Date: 20220303
  Serious: Yes (Death, Hospitalization, Other)
  Sender: FDA-Public Use
  Company Number: US-TEVA-2020-US-1843445

PATIENT
  Age: 60 Year
  Sex: Male

DRUGS (9)
  1. CLOZAPINE [Suspect]
     Active Substance: CLOZAPINE
     Dosage: Q AM
     Route: 048
  2. CLOZAPINE [Suspect]
     Active Substance: CLOZAPINE
     Dosage: QHS
     Route: 048
  3. CHLORTHALIDONE [Concomitant]
     Active Substance: CHLORTHALIDONE
     Dosage: QDAY
  4. LISINOPRIL [Concomitant]
     Active Substance: LISINOPRIL
     Dosage: QDAY
  5. NIACIN [Concomitant]
     Active Substance: NIACIN
  6. MELOXICAM [Concomitant]
     Active Substance: MELOXICAM
     Indication: Pain
     Dosage: PRN
  7. LORATADINE [Concomitant]
     Active Substance: LORATADINE
     Dosage: Q DAY PRN
  8. PEPCID [Concomitant]
     Active Substance: FAMOTIDINE
     Dosage: QHS
  9. VISTARIL [Concomitant]
     Active Substance: HYDROXYZINE PAMOATE
     Indication: Anxiety
     Dosage: Q4H PRN FOR ANXIETY

REACTIONS (3)
  - Pneumonia aspiration [Fatal]
  - Sepsis [Fatal]
  - Neutrophil count abnormal [Unknown]

NARRATIVE: CASE EVENT DATE: 20210725
